FAERS Safety Report 6380659-2 (Version None)
Quarter: 2009Q3

REPORT INFORMATION
  Report Type: 
  Country: None (occurrence: None)
  Receive Date: 20090923
  Receipt Date: 20090914
  Transmission Date: 20100115
  Serious: Yes (Life-Threatening)
  Sender: FDA-Public Use
  Company Number: URSO-2009-060 FUP#3

PATIENT
  Age: 60 Year
  Sex: Male

DRUGS (2)
  1. URSO 250 [Suspect]
     Indication: HEPATITIS C VIRUS TEST
     Dosage: 600MG ORAL
     Route: 048
     Dates: start: 20070724
  2. LIVACT (ISOLEUCINE-LEUCINE-VALINE) [Concomitant]

REACTIONS (3)
  - CONCOMITANT DISEASE PROGRESSION [None]
  - HEPATIC CIRRHOSIS [None]
  - HEPATIC NEOPLASM MALIGNANT [None]
